FAERS Safety Report 14401780 (Version 1)
Quarter: 2018Q1

REPORT INFORMATION
  Report Type: Spontaneous
  Country: US (occurrence: US)
  Receive Date: 20180117
  Receipt Date: 20180117
  Transmission Date: 20180509
  Serious: Yes (Hospitalization)
  Sender: FDA-Public Use
  Company Number: US-PFIZER INC-2018014326

PATIENT
  Age: 39 Year
  Sex: Female

DRUGS (8)
  1. HYDROCORTISONE ACETATE. [Interacting]
     Active Substance: HYDROCORTISONE ACETATE
     Indication: HISTIOCYTOSIS HAEMATOPHAGIC
     Dosage: 50 MG, 4X/DAY (EVERY 6 HOURS)
     Route: 042
  2. OXYGEN. [Interacting]
     Active Substance: OXYGEN
     Indication: PNEUMONIA ADENOVIRAL
  3. OXYGEN. [Interacting]
     Active Substance: OXYGEN
     Indication: EOSINOPHILIA
  4. METHYLPREDNISOLONE ACETATE. [Interacting]
     Active Substance: METHYLPREDNISOLONE ACETATE
     Dosage: 1 G, UNK
     Route: 042
  5. METHYLPREDNISOLONE ACETATE. [Suspect]
     Active Substance: METHYLPREDNISOLONE ACETATE
     Indication: HISTIOCYTOSIS HAEMATOPHAGIC
     Dosage: 1 G, UNK (ADMINISTERED PRIOR TO ECMO; AND FROM ECMO DAY 9 TO 11)
     Route: 042
  6. METHYLPREDNISOLONE ACETATE. [Interacting]
     Active Substance: METHYLPREDNISOLONE ACETATE
     Dosage: 40 MG, DAILY (TAPER OF 40 MG IV MP DAILY FOR 2 DAYS)
     Route: 042
  7. HYDROCORTISONE ACETATE. [Interacting]
     Active Substance: HYDROCORTISONE ACETATE
     Indication: STRESS
  8. OXYGEN. [Interacting]
     Active Substance: OXYGEN
     Indication: ACUTE RESPIRATORY DISTRESS SYNDROME
     Dosage: UNK

REACTIONS (2)
  - Drug-device interaction [Unknown]
  - Cortisol decreased [Unknown]
